FAERS Safety Report 12164181 (Version 1)
Quarter: 2016Q1

REPORT INFORMATION
  Report Type: Spontaneous
  Country: US (occurrence: US)
  Receive Date: 20160309
  Receipt Date: 20160309
  Transmission Date: 20160526
  Serious: No
  Sender: FDA-Public Use
  Company Number: US-ROCHE-1643475

PATIENT
  Sex: Male

DRUGS (5)
  1. ZYRTEC [Concomitant]
     Active Substance: CETIRIZINE HYDROCHLORIDE
  2. XOLAIR [Suspect]
     Active Substance: OMALIZUMAB
     Indication: URTICARIA
  3. SINGULAIR [Concomitant]
     Active Substance: MONTELUKAST SODIUM
  4. EPIPEN [Concomitant]
     Active Substance: EPINEPHRINE
  5. XOLAIR [Suspect]
     Active Substance: OMALIZUMAB
     Indication: URTICARIA CHRONIC
     Route: 058
     Dates: start: 20151005

REACTIONS (2)
  - Drug ineffective [Unknown]
  - Urticaria [Not Recovered/Not Resolved]
